FAERS Safety Report 26130582 (Version 1)
Quarter: 2025Q4

REPORT INFORMATION
  Report Type: Spontaneous
  Country: US (occurrence: None)
  Receive Date: 20251205
  Receipt Date: 20251205
  Transmission Date: 20260118
  Serious: Yes (Hospitalization)
  Sender: FDA-CTU
  Company Number: None

PATIENT
  Age: 63 Year
  Sex: Female

DRUGS (1)
  1. ZARXIO [Suspect]
     Active Substance: FILGRASTIM-SNDZ
     Indication: Acute lymphocytic leukaemia
     Dosage: 300MCG FOR THE RECENT ORDER, BUT 480MCG FOR THE PREVIOUS ORDER SHIPPED IN OCTOBER OF 2025 ONCE DAILY

REACTIONS (1)
  - Hospitalisation [None]
